FAERS Safety Report 9697222 (Version 2)
Quarter: 2013Q4

REPORT INFORMATION
  Report Type: Spontaneous
  Country: US (occurrence: US)
  Receive Date: 20131120
  Receipt Date: 20131214
  Transmission Date: 20140711
  Serious: No
  Sender: FDA-Public Use
  Company Number: US-009507513-1311USA007752

PATIENT
  Sex: Female

DRUGS (1)
  1. PROVENTIL [Suspect]
     Indication: ASTHMA
     Dosage: 2 PUFFS EVERY 6 HOURS, PRN
     Route: 055
     Dates: start: 20131009

REACTIONS (3)
  - Dry mouth [Recovering/Resolving]
  - Drug dose omission [Unknown]
  - Product quality issue [Unknown]
